FAERS Safety Report 17224396 (Version 1)
Quarter: 2020Q1

REPORT INFORMATION
  Report Type: Spontaneous
  Country: US (occurrence: US)
  Receive Date: 20191231
  Receipt Date: 20191231
  Transmission Date: 20200409
  Serious: Yes (Death, Life-Threatening)
  Sender: FDA-Public Use
  Company Number: None

PATIENT
  Age: 86 Year
  Sex: Male
  Weight: 99.9 kg

DRUGS (18)
  1. VITAMIN D [Concomitant]
     Active Substance: VITAMIN D NOS
  2. PRESERVISION AREDS 2 [Concomitant]
     Active Substance: MINERALS\VITAMINS
  3. FUROSEMIDE. [Concomitant]
     Active Substance: FUROSEMIDE
  4. ASPIRIN 81 [Concomitant]
     Active Substance: ASPIRIN
  5. BICALUTAMIDE. [Concomitant]
     Active Substance: BICALUTAMIDE
  6. ELIQUIS [Concomitant]
     Active Substance: APIXABAN
  7. METOPROLOL TARTRATE. [Concomitant]
     Active Substance: METOPROLOL TARTRATE
  8. VITAMIN C [Concomitant]
     Active Substance: ASCORBIC ACID
  9. TRAZODONE HYDROCHLORIDE. [Concomitant]
     Active Substance: TRAZODONE HYDROCHLORIDE
  10. ELIGARD [Concomitant]
     Active Substance: LEUPROLIDE ACETATE
  11. PROTONIX [Concomitant]
     Active Substance: PANTOPRAZOLE SODIUM
  12. PREDNISONE. [Concomitant]
     Active Substance: PREDNISONE
  13. HYDROCORTISONE. [Concomitant]
     Active Substance: HYDROCORTISONE
  14. FINASTERIDE. [Concomitant]
     Active Substance: FINASTERIDE
  15. NUBEQA [Suspect]
     Active Substance: DAROLUTAMIDE
     Indication: PROSTATE CANCER
     Route: 048
     Dates: start: 20190917, end: 20191226
  16. ATORVASTATIN CALCIUM. [Concomitant]
     Active Substance: ATORVASTATIN CALCIUM
  17. VITAMIN B12 [Concomitant]
     Active Substance: CYANOCOBALAMIN
  18. TAMSULOSIN HCL [Concomitant]
     Active Substance: TAMSULOSIN HYDROCHLORIDE

REACTIONS (1)
  - Death [None]

NARRATIVE: CASE EVENT DATE: 20191226
